FAERS Safety Report 20641105 (Version 2)
Quarter: 2022Q2

REPORT INFORMATION
  Report Type: Report from Study
  Country: PK (occurrence: PK)
  Receive Date: 20220327
  Receipt Date: 20220407
  Transmission Date: 20220721
  Serious: Yes (Other)
  Sender: FDA-Public Use
  Company Number: PK-NOVARTISPH-NVSC2022PK068558

PATIENT
  Sex: Male
  Weight: 86 kg

DRUGS (3)
  1. TASIGNA [Suspect]
     Active Substance: NILOTINIB
     Indication: Chronic myeloid leukaemia
     Dosage: 3 DOSAGE FORM, QD (200 MG)
     Route: 048
     Dates: start: 20210309
  2. TASIGNA [Suspect]
     Active Substance: NILOTINIB
     Dosage: 3 DOSAGE FORM, QD (150 MG)
     Route: 065
     Dates: start: 20220321
  3. TASIGNA [Suspect]
     Active Substance: NILOTINIB
     Dosage: 4 DOSAGE FORM, QD (150 MG)
     Route: 065

REACTIONS (1)
  - Myocardial infarction [Recovering/Resolving]

NARRATIVE: CASE EVENT DATE: 20210101
